FAERS Safety Report 4396222-9 (Version None)
Quarter: 2004Q2

REPORT INFORMATION
  Report Type: 
  Country: None (occurrence: None)
  Receive Date: 20040621
  Receipt Date: 20031121
  Transmission Date: 20050107
  Serious: Yes (Death)
  Sender: FDA-Public Use
  Company Number: USA-2003-0010996

PATIENT
  Age: 49 Year
  Sex: Male
  Weight: 66.2 kg

DRUGS (6)
  1. OXYCONTIN [Suspect]
     Indication: PAIN
  2. MORPHINE SULFATE [Suspect]
  3. HYDROCODONE BITARTRATE [Suspect]
  4. METHADONE HCL [Suspect]
  5. BENZODIAZEPINE DERIVATIVES [Suspect]
  6. LIDOCAINE [Suspect]

REACTIONS (4)
  - ACCIDENTAL OVERDOSE [None]
  - ANOXIC ENCEPHALOPATHY [None]
  - CARDIAC ARREST [None]
  - MULTIPLE DRUG OVERDOSE [None]
